FAERS Safety Report 7633040-X (Version None)
Quarter: 2011Q3

REPORT INFORMATION
  Report Type: 
  Country: None (occurrence: None)
  Receive Date: 20110725
  Receipt Date: 20110714
  Transmission Date: 20111222
  Serious: Yes (Other)
  Sender: FDA-Public Use
  Company Number: PHHY2011JP63896

PATIENT
  Sex: Male
  Weight: 53 kg

DRUGS (7)
  1. CYCLOSPORINE [Suspect]
     Indication: HEART TRANSPLANT
     Dosage: 150 MG,DAILY
     Route: 048
     Dates: start: 19980601
  2. AZATHIOPRINE [Concomitant]
     Indication: HEART TRANSPLANT
     Dosage: UNK UKN, UNK
     Route: 048
     Dates: start: 19980601, end: 19980630
  3. ITRACONAZOLE [Concomitant]
     Dosage: UNK UKN, UNK
     Route: 048
     Dates: start: 19980601
  4. CYCLOSPORINE [Suspect]
     Dosage: 250 MG,DAILY
     Route: 048
     Dates: start: 19990202, end: 19990401
  5. MYCOPHENOLATE MOFETIL [Concomitant]
     Indication: HEART TRANSPLANT
     Dosage: UNK UKN, UNK
     Route: 048
     Dates: start: 19990201
  6. CYCLOSPORINE [Suspect]
     Dosage: 300 MG,DAILY
     Route: 048
     Dates: start: 19980701
  7. FUROSEMIDE [Concomitant]
     Indication: RENAL FAILURE
     Dosage: UNK UKN, UNK
     Route: 048
     Dates: start: 19980601

REACTIONS (2)
  - VASCULAR PSEUDOANEURYSM [None]
  - HEART TRANSPLANT REJECTION [None]
